FAERS Safety Report 8849407 (Version 1)
Quarter: 2012Q4

REPORT INFORMATION
  Report Type: Spontaneous
  Country: US (occurrence: None)
  Receive Date: 20121018
  Receipt Date: 20121018
  Transmission Date: 20130627
  Serious: Yes (Other)
  Sender: FDA-Public Use
  Company Number: None

PATIENT
  Age: 47 Year
  Sex: Male
  Weight: 82.1 kg

DRUGS (1)
  1. PROMETHAZINE [Suspect]
     Indication: COUGH
     Dosage: 1 teaspoon ful by mouth  3 times a day  po
     Route: 048
     Dates: start: 20120921, end: 20120922

REACTIONS (4)
  - Vision blurred [None]
  - Pharyngeal oedema [None]
  - Dizziness [None]
  - Dyspnoea [None]
